FAERS Safety Report 15582927 (Version 2)
Quarter: 2018Q4

REPORT INFORMATION
  Report Type: Spontaneous
  Country: PL (occurrence: PL)
  Receive Date: 20181103
  Receipt Date: 20181109
  Transmission Date: 20190205
  Serious: Yes (Other)
  Sender: FDA-Public Use
  Company Number: PL-AUROBINDO-AUR-APL-2018-053322

PATIENT
  Age: 49 Year
  Sex: Female

DRUGS (3)
  1. RIBAVIRIN FILM-COATED TABLET [Suspect]
     Active Substance: RIBAVIRIN
     Indication: CHRONIC HEPATITIS C
     Dosage: UNK
     Route: 065
     Dates: start: 2012
  2. SOVALDI [Suspect]
     Active Substance: SOFOSBUVIR
     Indication: CHRONIC HEPATITIS C
     Dosage: 400 MILLIGRAM, ONCE A DAY
     Route: 048
     Dates: start: 2016, end: 2016
  3. RIBAVIRIN FILM-COATED TABLET [Suspect]
     Active Substance: RIBAVIRIN
     Dosage: UNK
     Route: 065
     Dates: start: 2016, end: 2016

REACTIONS (2)
  - Hepatitis C [Recovered/Resolved]
  - Drug ineffective [Recovered/Resolved]

NARRATIVE: CASE EVENT DATE: 2016
